FAERS Safety Report 20877602 (Version 1)
Quarter: 2022Q2

REPORT INFORMATION
  Report Type: Report from Study
  Country: US (occurrence: US)
  Receive Date: 20220526
  Receipt Date: 20220526
  Transmission Date: 20220721
  Serious: Yes (Hospitalization)
  Sender: FDA-Public Use
  Company Number: US-TAKEDA-2022TUS028761

PATIENT
  Age: 11 Year
  Sex: Male
  Weight: 25.4 kg

DRUGS (8)
  1. TEDUGLUTIDE [Suspect]
     Active Substance: TEDUGLUTIDE
     Indication: Short-bowel syndrome
     Dosage: 10 MILLIGRAM, QD
     Route: 042
     Dates: start: 20190814
  2. TEDUGLUTIDE [Suspect]
     Active Substance: TEDUGLUTIDE
     Indication: Short-bowel syndrome
     Dosage: 10 MILLIGRAM, QD
     Route: 042
     Dates: start: 20190814
  3. TEDUGLUTIDE [Suspect]
     Active Substance: TEDUGLUTIDE
     Indication: Short-bowel syndrome
     Dosage: 10 MILLIGRAM, QD
     Route: 042
     Dates: start: 20190814
  4. TEDUGLUTIDE [Suspect]
     Active Substance: TEDUGLUTIDE
     Indication: Short-bowel syndrome
     Dosage: 10 MILLIGRAM, QD
     Route: 042
     Dates: start: 20190814
  5. METRONIDAZOLE [Concomitant]
     Active Substance: METRONIDAZOLE
     Indication: Abdominal infection
     Dosage: 125 MILLIGRAM, TID
     Route: 048
     Dates: start: 20220111, end: 20220111
  6. LANSOPRAZOLE [Concomitant]
     Active Substance: LANSOPRAZOLE
     Indication: Product used for unknown indication
     Dosage: 15 MILLIGRAM, QD
     Route: 048
     Dates: start: 20220111, end: 20220111
  7. OCRYLATE [Concomitant]
     Active Substance: OCRYLATE
     Indication: Product used for unknown indication
     Dosage: 99999 UNK, PRN
     Route: 061
     Dates: start: 20211021, end: 20211021
  8. BUPIVACAINE [Concomitant]
     Active Substance: BUPIVACAINE
     Indication: Product used for unknown indication
     Dosage: 5 MILLILITER, PRN
     Route: 050
     Dates: start: 20211021, end: 20211021

REACTIONS (1)
  - Cryptorchism [Recovered/Resolved]

NARRATIVE: CASE EVENT DATE: 20211021
